FAERS Safety Report 6972591-8 (Version None)
Quarter: 2010Q3

REPORT INFORMATION
  Report Type: 
  Country: None (occurrence: None)
  Receive Date: 20100909
  Receipt Date: 20100830
  Transmission Date: 20110219
  Serious: Yes (Other)
  Sender: FDA-Public Use
  Company Number: US-WYE-H17252410

PATIENT
  Sex: Female
  Weight: 62.2 kg

DRUGS (4)
  1. PREMARIN [Suspect]
     Indication: VULVOVAGINAL DRYNESS
     Dosage: UNKNOWN
     Route: 067
     Dates: start: 20080101
  2. PREMARIN [Suspect]
     Dosage: SMALL AMOUNT ON FINGER, DAILY FOR 1 WEEK, THEN TWICE WEEKLY
     Route: 067
     Dates: start: 20100827, end: 20100830
  3. LISINOPRIL [Concomitant]
     Indication: HYPERTENSION
     Dosage: UNKNOWN
     Route: 065
  4. VERAPAMIL HCL [Concomitant]
     Indication: HYPERTENSION
     Dosage: UNKNOWN
     Route: 065

REACTIONS (5)
  - DIZZINESS [None]
  - HYSTERECTOMY [None]
  - NASAL DISCOMFORT [None]
  - RHINORRHOEA [None]
  - VAGINAL HAEMORRHAGE [None]
